FAERS Safety Report 20150727 (Version 3)
Quarter: 2021Q4

REPORT INFORMATION
  Report Type: Spontaneous
  Country: TH (occurrence: TH)
  Receive Date: 20211206
  Receipt Date: 20211224
  Transmission Date: 20220303
  Serious: Yes (Life-Threatening, Hospitalization, Other)
  Sender: FDA-Public Use
  Company Number: TH-MLMSERVICE-20211116-3222141-1

PATIENT
  Age: 20 Year
  Sex: Female
  Weight: 57 kg

DRUGS (10)
  1. LAMOTRIGINE [Interacting]
     Active Substance: LAMOTRIGINE
     Indication: Major depression
     Dosage: UNK
     Route: 048
     Dates: start: 20190523, end: 20201117
  2. LURASIDONE [Interacting]
     Active Substance: LURASIDONE
     Indication: Major depression
     Dosage: UNK
     Route: 048
     Dates: start: 20190815, end: 20201117
  3. BUPROPION [Interacting]
     Active Substance: BUPROPION
     Indication: Major depression
     Dosage: UNK (EXTENDED RELEASE)
     Route: 048
     Dates: start: 20190815, end: 20201117
  4. ESCITALOPRAM [Interacting]
     Active Substance: ESCITALOPRAM OXALATE
     Indication: Major depression
     Dosage: UNK
     Route: 048
     Dates: start: 20190919
  5. BRINTELLIX [Interacting]
     Active Substance: VORTIOXETINE HYDROBROMIDE
     Indication: Major depression
     Dosage: UNK
     Route: 048
     Dates: start: 20201105, end: 20201117
  6. LAMICTAL [Interacting]
     Active Substance: LAMOTRIGINE
     Indication: Major depression
     Dates: start: 20190523, end: 20201117
  7. LATUDA [Interacting]
     Active Substance: LURASIDONE HYDROCHLORIDE
     Indication: Major depression
     Dates: start: 20190815, end: 20201117
  8. WELLBUTRIN XL [Interacting]
     Active Substance: BUPROPION HYDROCHLORIDE
     Indication: Major depression
     Dosage: EXTENDED RELEASE
     Dates: start: 20190815, end: 20201117
  9. ESCITALOPRAM [Interacting]
     Active Substance: ESCITALOPRAM OXALATE
     Indication: Major depression
     Dates: start: 20190919, end: 20201105
  10. BRINTELLIX [Interacting]
     Active Substance: VORTIOXETINE HYDROBROMIDE
     Indication: Major depression
     Dates: start: 20201105, end: 20201117

REACTIONS (8)
  - Encephalopathy [Recovered/Resolved]
  - Electrocardiogram QT prolonged [Recovered/Resolved]
  - Serotonin syndrome [Recovered/Resolved]
  - Anticholinergic syndrome [Recovered/Resolved]
  - Rhabdomyolysis [Recovered/Resolved]
  - Pneumonia aspiration [Recovered/Resolved]
  - Drug interaction [Unknown]
  - Intentional overdose [Unknown]

NARRATIVE: CASE EVENT DATE: 20201117
